FAERS Safety Report 9834577 (Version 2)
Quarter: 2014Q1

REPORT INFORMATION
  Report Type: Spontaneous
  Country: US (occurrence: US)
  Receive Date: 20140122
  Receipt Date: 20140122
  Transmission Date: 20141002
  Serious: Yes (Hospitalization)
  Sender: FDA-Public Use
  Company Number: GXKR2010US13176

PATIENT
  Age: 50 Year
  Sex: Male

DRUGS (3)
  1. HYDROCHLOROTHIAZIDE [Suspect]
     Dosage: 625 MG, UNK
  2. AMLODIPINE [Suspect]
     Dosage: 500 MG, UNK
     Route: 065
  3. LISINOPRIL [Suspect]
     Dosage: 1000 MG, UNK

REACTIONS (18)
  - Shock [Recovered/Resolved]
  - Respiratory failure [Recovered/Resolved]
  - Cardiac output decreased [Recovered/Resolved]
  - Sepsis [Recovered/Resolved]
  - Toxicity to various agents [Recovered/Resolved]
  - Hypotension [Recovered/Resolved]
  - Cardiomyopathy [Recovered/Resolved]
  - Hypoxia [Recovered/Resolved]
  - Pericardial effusion [Recovered/Resolved]
  - Hypophosphataemia [Recovered/Resolved]
  - Ejection fraction decreased [Recovered/Resolved]
  - Staphylococcal bacteraemia [Recovered/Resolved]
  - Depressed level of consciousness [Recovered/Resolved]
  - Suicide attempt [Recovered/Resolved]
  - Heart rate increased [Recovered/Resolved]
  - Renal failure [Recovered/Resolved]
  - Hypokalaemia [Recovered/Resolved]
  - Overdose [Recovered/Resolved]
